FAERS Safety Report 4562727-0 (Version None)
Quarter: 2005Q1

REPORT INFORMATION
  Report Type: 
  Country: None (occurrence: None)
  Receive Date: 20050127
  Receipt Date: 20050118
  Transmission Date: 20050727
  Serious: Yes (Hospitalization)
  Sender: FDA-Public Use
  Company Number: US-BRISTOL-MYERS SQUIBB COMPANY-12834925

PATIENT
  Age: 65 Year
  Sex: Female

DRUGS (1)
  1. SERZONE [Suspect]
     Indication: DEPRESSION
     Dates: start: 19971010, end: 19971231

REACTIONS (1)
  - HEPATIC FAILURE [None]
